FAERS Safety Report 5893447-8 (Version None)
Quarter: 2008Q3

REPORT INFORMATION
  Report Type: 
  Country: None (occurrence: None)
  Receive Date: 20080923
  Receipt Date: 20080922
  Transmission Date: 20090109
  Serious: Yes (Other)
  Sender: FDA-Public Use
  Company Number: GB-BRISTOL-MYERS SQUIBB COMPANY-14306161

PATIENT
  Age: 37 Year
  Sex: Female

DRUGS (7)
  1. EFAVIRENZ [Suspect]
     Indication: HIV INFECTION
  2. ABACAVIR [Suspect]
     Indication: HIV INFECTION
  3. LAMIVUDINE [Suspect]
     Indication: HIV INFECTION
  4. RIFAMPICIN [Suspect]
     Indication: TUBERCULOSIS
  5. ISONIAZID [Suspect]
     Indication: TUBERCULOSIS
  6. PYRAZINAMIDE [Suspect]
     Indication: TUBERCULOSIS
  7. ETHAMBUTOL HCL [Suspect]
     Indication: TUBERCULOSIS

REACTIONS (4)
  - ACNE [None]
  - IMMUNE RECONSTITUTION SYNDROME [None]
  - RASH PAPULAR [None]
  - RASH PRURITIC [None]
